FAERS Safety Report 5785977-4 (Version None)
Quarter: 2008Q2

REPORT INFORMATION
  Report Type: 
  Country: None (occurrence: None)
  Receive Date: 20080624
  Receipt Date: 20080612
  Transmission Date: 20081010
  Serious: Yes (Other)
  Sender: FDA-Public Use
  Company Number: PHEH2008US05408

PATIENT

DRUGS (2)
  1. DIOVAN [Suspect]
  2. SYNTHROID [Concomitant]

REACTIONS (3)
  - BIOPSY [None]
  - HYPERSENSITIVITY [None]
  - LICHENOID KERATOSIS [None]
